FAERS Safety Report 12212079 (Version 1)
Quarter: 2016Q1

REPORT INFORMATION
  Report Type: Report from Study
  Country: FR (occurrence: FR)
  Receive Date: 20160325
  Receipt Date: 20160325
  Transmission Date: 20160526
  Serious: Yes (Hospitalization)
  Sender: FDA-Public Use
  Company Number: FR-ABBVIE-16P-056-1592112-00

PATIENT
  Age: 72 Year
  Sex: Male

DRUGS (1)
  1. DUODOPA [Suspect]
     Active Substance: CARBIDOPA\LEVODOPA
     Indication: PARKINSON^S DISEASE
     Dosage: MD: 11ML; EXD: 4.6ML; CR: DURING THE DAY 4.6 ML/H, FROM 07AM TO 08PM
     Route: 050
     Dates: start: 20160205

REACTIONS (1)
  - Lung disorder [Unknown]
